FAERS Safety Report 8268685-X (Version None)
Quarter: 2012Q2

REPORT INFORMATION
  Report Type: 
  Country: None (occurrence: None)
  Receive Date: 20120409
  Receipt Date: 20120326
  Transmission Date: 20120825
  Serious: Yes (Hospitalization)
  Sender: FDA-Public Use
  Company Number: DE-ROCHE-1051310

PATIENT
  Sex: Male
  Weight: 71.5 kg

DRUGS (2)
  1. MABTHERA [Suspect]
     Indication: CHRONIC LYMPHOCYTIC LEUKAEMIA
     Dosage: DOSE AS REPORTED: 700 MG
     Route: 042
     Dates: start: 20111213, end: 20111213
  2. MABTHERA [Suspect]
     Route: 042
     Dates: start: 20120117

REACTIONS (3)
  - TUMOUR LYSIS SYNDROME [None]
  - RENAL FAILURE ACUTE [None]
  - RENAL FAILURE [None]
